FAERS Safety Report 9426456 (Version 2)
Quarter: 2013Q3

REPORT INFORMATION
  Report Type: Report from Study
  Country: US (occurrence: US)
  Receive Date: 20130730
  Receipt Date: 20130822
  Transmission Date: 20140515
  Serious: Yes (Other)
  Sender: FDA-Public Use
  Company Number: US-CELGENEUS-163-21880-13014341

PATIENT
  Age: 64 Year
  Sex: Male
  Weight: 99.88 kg

DRUGS (23)
  1. REVLIMID [Suspect]
     Indication: B-CELL LYMPHOMA
     Dosage: 10 MILLIGRAM
     Route: 048
     Dates: start: 20110909, end: 201212
  2. REVLIMID [Suspect]
     Dosage: 10 MILLIGRAM
     Route: 048
     Dates: start: 201301, end: 20130718
  3. REVLIMID [Suspect]
     Dosage: 5 MILLIGRAM
     Route: 048
     Dates: start: 20130808
  4. OFATUMUMAB [Suspect]
     Indication: B-CELL LYMPHOMA
     Route: 041
     Dates: start: 20110907, end: 20111026
  5. COUMADIN [Concomitant]
     Indication: THROMBOSIS PROPHYLAXIS
     Dosage: 3 MILLIGRAM
     Route: 048
     Dates: start: 199310
  6. COUMADIN [Concomitant]
     Dosage: 1.5 MILLIGRAM
     Route: 048
     Dates: start: 199310
  7. CALCIUM [Concomitant]
     Indication: SUPPLEMENTATION THERAPY
     Dosage: 1200 MILLIGRAM
     Route: 048
     Dates: start: 20111227
  8. PRILOSEC [Concomitant]
     Indication: DYSPEPSIA
     Dosage: 40 MILLIGRAM
     Route: 065
  9. CARAFATE [Concomitant]
     Indication: DYSPEPSIA
     Route: 048
  10. ALEVE [Concomitant]
     Indication: ARTHRALGIA
     Dosage: 220MG - 440MG
     Route: 048
  11. VITAMIN D3 [Concomitant]
     Indication: SUPPLEMENTATION THERAPY
     Dosage: 2000 IU (INTERNATIONAL UNIT)
     Route: 048
     Dates: start: 20120330
  12. TOPROL XL [Concomitant]
     Indication: HYPERTENSION
     Dosage: 25 MILLIGRAM
     Route: 048
     Dates: start: 201102
  13. VIAGRA [Concomitant]
     Indication: ERECTILE DYSFUNCTION
     Route: 048
  14. CLARITIN [Concomitant]
     Indication: RHINITIS ALLERGIC
     Dosage: 10 MILLIGRAM
     Route: 048
     Dates: start: 201102
  15. MULTIVITAMINS [Concomitant]
     Indication: SUPPLEMENTATION THERAPY
     Dosage: 1 TABLET
     Route: 048
     Dates: start: 201108
  16. MAGNESIUM OXIDE [Concomitant]
     Indication: HYPOMAGNESAEMIA
     Dosage: 800 MILLIGRAM
     Route: 048
     Dates: start: 20130218
  17. CLINDAMYCIN [Concomitant]
     Indication: PRODUCT USED FOR UNKNOWN INDICATION
     Route: 065
     Dates: start: 20130723
  18. PHENYLEPHRINE [Concomitant]
     Indication: SINUS CONGESTION
     Dosage: 2 CAPLETS
     Route: 048
     Dates: start: 20111101
  19. IBUPROFEN [Concomitant]
     Indication: HEADACHE
     Dosage: 200 - 400MG
     Route: 048
     Dates: start: 20130127
  20. KEFLEX [Concomitant]
     Indication: PROPHYLAXIS
     Dosage: 2000 MILLIGRAM
     Route: 048
     Dates: start: 20130718, end: 20130723
  21. CIPRO [Concomitant]
     Indication: PROPHYLAXIS
     Dosage: 1000 MILLIGRAM
     Route: 048
     Dates: start: 20130723, end: 20130801
  22. BACTRIM DS [Concomitant]
     Indication: PRODUCT USED FOR UNKNOWN INDICATION
     Route: 065
  23. FLUTICASONE [Concomitant]
     Indication: PRODUCT USED FOR UNKNOWN INDICATION
     Route: 065

REACTIONS (2)
  - Actinic keratosis [Recovered/Resolved]
  - Squamous cell carcinoma of skin [Recovered/Resolved]
